FAERS Safety Report 23645244 (Version 1)
Quarter: 2024Q1

REPORT INFORMATION
  Report Type: Report from Study
  Country: US (occurrence: US)
  Receive Date: 20240318
  Receipt Date: 20240318
  Transmission Date: 20240410
  Serious: Yes (Hospitalization, Other)
  Sender: FDA-Public Use
  Company Number: US-TAKEDA-2024TUS023183

PATIENT
  Sex: Male

DRUGS (1)
  1. PONATINIB [Suspect]
     Active Substance: PONATINIB
     Indication: Acute lymphocytic leukaemia (in remission)
     Dosage: UNK
     Route: 048

REACTIONS (5)
  - Acute lymphocytic leukaemia recurrent [Unknown]
  - Cerebral thrombosis [Unknown]
  - Cerebral haemorrhage [Unknown]
  - Dry skin [Unknown]
  - Constipation [Unknown]
